FAERS Safety Report 12113885 (Version 1)
Quarter: 2016Q1

REPORT INFORMATION
  Report Type: Spontaneous
  Country: US (occurrence: None)
  Receive Date: 20160224
  Receipt Date: 20160224
  Transmission Date: 20160526
  Serious: Yes (Hospitalization)
  Sender: FDA-Public Use
  Company Number: None

PATIENT
  Age: 48 Year
  Sex: Female
  Weight: 53.5 kg

DRUGS (4)
  1. ETOPOSIDE (VP-16) [Suspect]
     Active Substance: ETOPOSIDE
     Dates: end: 20160122
  2. CYTARABINE. [Suspect]
     Active Substance: CYTARABINE
     Dates: end: 20160118
  3. METHOTREXATE [Suspect]
     Active Substance: METHOTREXATE
     Dates: end: 20160119
  4. ERWINIA ASPARAGINASE [Suspect]
     Active Substance: ASPARAGINASE ERWINIA CHRYSANTHEMI
     Dates: end: 20160129

REACTIONS (4)
  - Heart rate increased [None]
  - Lymphadenopathy [None]
  - Pyrexia [None]
  - Oropharyngeal pain [None]

NARRATIVE: CASE EVENT DATE: 20160207
